FAERS Safety Report 7898355-9 (Version None)
Quarter: 2011Q4

REPORT INFORMATION
  Report Type: 
  Country: None (occurrence: None)
  Receive Date: 20111107
  Receipt Date: 20111104
  Transmission Date: 20120403
  Serious: Yes (Life-Threatening, Hospitalization)
  Sender: FDA-Public Use
  Company Number: SE-CEPHALON-2011004794

PATIENT
  Sex: Male

DRUGS (3)
  1. LENALIDOMIDE [Suspect]
     Dates: start: 20110808, end: 20110905
  2. RITUXIMAB [Suspect]
     Dates: start: 20110808
  3. BENDAMUSTINE HCL [Suspect]
     Route: 042
     Dates: start: 20110808

REACTIONS (4)
  - LUNG ABSCESS [None]
  - SEPSIS [None]
  - HYPOTENSION [None]
  - PNEUMONIA [None]
